FAERS Safety Report 8814183 (Version 1)
Quarter: 2012Q4

REPORT INFORMATION
  Report Type: Report from Study
  Country: CA (occurrence: CA)
  Receive Date: 20120928
  Receipt Date: 20120928
  Transmission Date: 20130627
  Serious: Yes (Hospitalization, Other)
  Sender: FDA-Public Use
  Company Number: CA-JNJFOC-20120908621

PATIENT
  Age: 50 None
  Sex: Female
  Weight: 55 kg

DRUGS (4)
  1. REMICADE [Suspect]
     Indication: CROHN^S DISEASE
     Route: 042
     Dates: start: 20120730
  2. PREDNISONE [Concomitant]
     Route: 065
  3. CEFALEXIN [Concomitant]
     Indication: URINARY TRACT INFECTION
     Route: 065
  4. CIPRO [Concomitant]
     Indication: URINARY TRACT INFECTION
     Route: 065

REACTIONS (2)
  - Obstruction [Recovered/Resolved]
  - Rash generalised [Recovered/Resolved]
